FAERS Safety Report 25820081 (Version 3)
Quarter: 2025Q4

REPORT INFORMATION
  Report Type: Report from Study
  Country: US (occurrence: US)
  Receive Date: 20250919
  Receipt Date: 20251117
  Transmission Date: 20260118
  Serious: Yes (Other)
  Sender: ABBVIE
  Company Number: US-ABBVIE-6457136

PATIENT
  Age: 63 Year
  Sex: Female

DRUGS (2)
  1. CREON [Suspect]
     Active Substance: PANCRELIPASE AMYLASE\PANCRELIPASE LIPASE\PANCRELIPASE PROTEASE
     Indication: Product used for unknown indication
     Route: 048
     Dates: start: 20250616
  2. CREON [Suspect]
     Active Substance: PANCRELIPASE AMYLASE\PANCRELIPASE LIPASE\PANCRELIPASE PROTEASE
     Indication: Product used for unknown indication
     Route: 048

REACTIONS (13)
  - Energy increased [Recovering/Resolving]
  - Lipase increased [Recovering/Resolving]
  - Chest injury [Unknown]
  - Pancreatic disorder [Recovered/Resolved]
  - Abdominal pain upper [Not Recovered/Not Resolved]
  - Road traffic accident [Unknown]
  - Pancreatitis acute [Unknown]
  - Gastrointestinal viral infection [Unknown]
  - Pancreatitis [Recovering/Resolving]
  - Chills [Unknown]
  - Gastrointestinal wall thickening [Unknown]
  - Pain [Recovered/Resolved]
  - Splenomegaly [Unknown]

NARRATIVE: CASE EVENT DATE: 20250101
